FAERS Safety Report 4852972-9 (Version None)
Quarter: 2005Q4

REPORT INFORMATION
  Report Type: 
  Country: None (occurrence: None)
  Receive Date: 20051212
  Receipt Date: 20051117
  Transmission Date: 20060501
  Serious: Yes (Hospitalization, Other)
  Sender: FDA-Public Use
  Company Number: USA0508106178

PATIENT
  Age: 68 Year
  Sex: Female

DRUGS (6)
  1. HUMALOG [Suspect]
  2. FORTEO [Suspect]
     Indication: OSTEOPOROSIS
     Dosage: 20 UG, DAILY (1/D), SUBCUTANEOUS
     Route: 058
     Dates: start: 20040101
  3. FORTEO PEN (FORTEO PEN) PEN, DISPOSABLE [Concomitant]
  4. LANTUS [Concomitant]
  5. PRINIVIL [Concomitant]
  6. SIMVASTATIN [Concomitant]

REACTIONS (5)
  - ABASIA [None]
  - FALL [None]
  - FEMUR FRACTURE [None]
  - HYPOGLYCAEMIA [None]
  - PUBIC RAMI FRACTURE [None]
